FAERS Safety Report 23552675 (Version 1)
Quarter: 2024Q1

REPORT INFORMATION
  Report Type: Spontaneous
  Country: US (occurrence: None)
  Receive Date: 20240221
  Receipt Date: 20240221
  Transmission Date: 20240410
  Serious: No
  Sender: FDA-Public Use
  Company Number: None

PATIENT
  Age: 41 Year
  Sex: Female

DRUGS (12)
  1. AMBRISENTAN [Suspect]
     Active Substance: AMBRISENTAN
     Indication: Pulmonary hypertension
     Dosage: FREQUENCY : DAILY;?
     Route: 048
     Dates: start: 20220114
  2. PEPCID [Concomitant]
  3. TORSEMIDE [Concomitant]
  4. ABILIFY [Concomitant]
     Active Substance: ARIPIPRAZOLE
  5. PAXLOVID [Concomitant]
  6. CEFAZOLIN [Concomitant]
     Active Substance: CEFAZOLIN
  7. TADALAFIL [Concomitant]
     Active Substance: TADALAFIL
  8. UPTRAVI [Concomitant]
     Active Substance: SELEXIPAG
  9. FUROSEMIDE [Concomitant]
     Active Substance: FUROSEMIDE
  10. POTASSIUM [Concomitant]
  11. MAGNESIUM [Concomitant]
     Active Substance: MAGNESIUM
  12. MUCINEX [Concomitant]
     Active Substance: GUAIFENESIN

REACTIONS (2)
  - COVID-19 [None]
  - Bipolar disorder [None]

NARRATIVE: CASE EVENT DATE: 20240119
